FAERS Safety Report 6439480-9 (Version None)
Quarter: 2009Q4

REPORT INFORMATION
  Report Type: 
  Country: None (occurrence: None)
  Receive Date: 20091111
  Receipt Date: 20091111
  Transmission Date: 20100525
  Serious: No
  Sender: FDA-Public Use
  Company Number: None

PATIENT
  Age: 28 Year
  Sex: Female
  Weight: 67.1324 kg

DRUGS (1)
  1. VENLAFAXINE HCL [Suspect]
     Indication: DEPRESSION
     Dosage: 1 PER DAY FOR 30 DAYS PO
     Route: 048
     Dates: start: 20081028, end: 20091108

REACTIONS (3)
  - DRUG INEFFECTIVE [None]
  - EMOTIONAL DISTRESS [None]
  - MEDICATION RESIDUE [None]
